FAERS Safety Report 24320273 (Version 1)
Quarter: 2024Q3

REPORT INFORMATION
  Report Type: Spontaneous
  Country: US (occurrence: None)
  Receive Date: 20240914
  Receipt Date: 20240914
  Transmission Date: 20241017
  Serious: No
  Sender: ASTRAZENECA
  Company Number: 2024A175050

PATIENT
  Age: 8104 Day
  Sex: Female

DRUGS (2)
  1. SAPHNELO [Suspect]
     Active Substance: ANIFROLUMAB-FNIA
     Indication: Nausea
     Dosage: 30.0MG UNKNOWN
     Route: 042
     Dates: start: 20240319, end: 20240423
  2. SAPHNELO [Suspect]
     Active Substance: ANIFROLUMAB-FNIA
     Indication: Dyspnoea
     Dosage: 30.0MG UNKNOWN
     Route: 042
     Dates: start: 20240319, end: 20240423

REACTIONS (2)
  - Dyspnoea [Unknown]
  - Nausea [Unknown]

NARRATIVE: CASE EVENT DATE: 20240423
